FAERS Safety Report 6577335-X (Version None)
Quarter: 2010Q1

REPORT INFORMATION
  Report Type: 
  Country: None (occurrence: None)
  Receive Date: 20100210
  Receipt Date: 20100202
  Transmission Date: 20100710
  Serious: Yes (Other)
  Sender: FDA-Public Use
  Company Number: TR-ALLERGAN-1001508US

PATIENT
  Age: 86 Year
  Sex: Male

DRUGS (4)
  1. EXOCIN 0.3% OPHTHALMLIC SOLUTION [Suspect]
     Indication: POSTOPERATIVE CARE
     Dosage: UNK
     Route: 047
  2. AVASTIN [Suspect]
     Indication: CHOROIDAL NEOVASCULARISATION
     Dosage: 1.25 MG, SINGLE
     Route: 031
  3. ALCAINE [Concomitant]
     Indication: ANAESTHESIA
     Dosage: UNK
     Route: 061
  4. POVIDONE IODINE [Concomitant]
     Dosage: UNK
     Route: 061

REACTIONS (2)
  - DRUG INEFFECTIVE [None]
  - ENDOPHTHALMITIS [None]
